FAERS Safety Report 25233289 (Version 1)
Quarter: 2025Q2

REPORT INFORMATION
  Report Type: Spontaneous
  Country: US (occurrence: US)
  Receive Date: 20250424
  Receipt Date: 20250424
  Transmission Date: 20250716
  Serious: Yes (Other)
  Sender: COOPERSURGICAL
  Company Number: US-COOPERSURGICAL, INC.-2025CPS003099

PATIENT
  Age: 23 Year
  Sex: Female
  Weight: 99.773 kg

DRUGS (1)
  1. PARAGARD T 380A [Suspect]
     Active Substance: COPPER
     Indication: Contraception
     Route: 015
     Dates: start: 20120208, end: 20220323

REACTIONS (13)
  - Reproductive complication associated with device [Unknown]
  - Device breakage [Unknown]
  - Foreign body in reproductive tract [Unknown]
  - Complication of device removal [Unknown]
  - Device material issue [Unknown]
  - Anxiety [Recovered/Resolved]
  - Vulvovaginal discomfort [Recovered/Resolved]
  - Pelvic pain [Not Recovered/Not Resolved]
  - Muscle spasms [Not Recovered/Not Resolved]
  - Abnormal uterine bleeding [Recovered/Resolved]
  - Device dislocation [Unknown]
  - Off label use [Unknown]
  - Device use issue [Unknown]

NARRATIVE: CASE EVENT DATE: 20140304
